FAERS Safety Report 14383676 (Version 2)
Quarter: 2018Q1

REPORT INFORMATION
  Report Type: Spontaneous
  Country: CA (occurrence: CA)
  Receive Date: 20180115
  Receipt Date: 20180210
  Transmission Date: 20180509
  Serious: Yes (Other)
  Sender: FDA-Public Use
  Company Number: CA-BAXTER-2018BAX001205

PATIENT
  Age: 83 Year
  Sex: Female
  Weight: 64.1 kg

DRUGS (1)
  1. 5% DEXTROSE INJECTION [Suspect]
     Active Substance: DEXTROSE
     Indication: MEDICATION DILUTION
     Route: 042

REACTIONS (3)
  - Haemorrhage [Unknown]
  - Device breakage [Recovered/Resolved]
  - Accidental exposure to product [Recovered/Resolved]

NARRATIVE: CASE EVENT DATE: 20180103
